FAERS Safety Report 14447816 (Version 1)
Quarter: 2018Q1

REPORT INFORMATION
  Report Type: Spontaneous
  Country: ES (occurrence: ES)
  Receive Date: 20180126
  Receipt Date: 20180126
  Transmission Date: 20180509
  Serious: Yes (Other)
  Sender: FDA-Public Use
  Company Number: ES-CELGENEUS-ESP-20180107036

PATIENT
  Sex: Female
  Weight: 42 kg

DRUGS (2)
  1. ADIRO [Concomitant]
     Active Substance: ASPIRIN
     Indication: PRODUCT USED FOR UNKNOWN INDICATION
     Route: 065
  2. OTEZLA [Suspect]
     Active Substance: APREMILAST
     Indication: PSORIASIS
     Route: 048
     Dates: start: 20171228, end: 20180124

REACTIONS (4)
  - Tremor [Unknown]
  - Diarrhoea [Unknown]
  - Decreased appetite [Unknown]
  - Weight decreased [Unknown]
